FAERS Safety Report 8450028-X (Version None)
Quarter: 2012Q2

REPORT INFORMATION
  Report Type: 
  Country: None (occurrence: None)
  Receive Date: 20120620
  Receipt Date: 20120615
  Transmission Date: 20120825
  Serious: No
  Sender: FDA-Public Use
  Company Number: US-PFIZER INC-2012098640

PATIENT
  Sex: Female
  Weight: 72.6 kg

DRUGS (4)
  1. GEODON [Suspect]
     Indication: INSOMNIA
     Dosage: 180 MG, DAILY
  2. GEODON [Suspect]
     Dosage: 160 MG, DAILY
     Dates: start: 20010402
  3. ARTHROTEC [Suspect]
     Indication: POLYARTHRITIS
     Dosage: UNK
  4. SEROQUEL [Suspect]
     Dosage: UNK
     Dates: start: 20050101

REACTIONS (1)
  - BLOOD CHOLESTEROL INCREASED [None]
